FAERS Safety Report 18152309 (Version 2)
Quarter: 2020Q3

REPORT INFORMATION
  Report Type: Report from Study
  Country: CN (occurrence: CN)
  Receive Date: 20200814
  Receipt Date: 20200828
  Transmission Date: 20201103
  Serious: Yes (Death, Other)
  Sender: FDA-Public Use
  Company Number: CN-ASTRAZENECA-2020SF02051

PATIENT
  Age: 80 Year
  Sex: Male

DRUGS (1)
  1. TAGRISSO [Suspect]
     Active Substance: OSIMERTINIB
     Indication: NON-SMALL CELL LUNG CANCER
     Dosage: 80.0MG UNKNOWN
     Route: 048
     Dates: start: 2020

REACTIONS (8)
  - Death [Fatal]
  - Lymphadenopathy mediastinal [Unknown]
  - Pneumonia [Unknown]
  - Hilar lymphadenopathy [Unknown]
  - Pleural effusion [Unknown]
  - Hydrothorax [Unknown]
  - Pulmonary mass [Unknown]
  - Emphysema [Unknown]

NARRATIVE: CASE EVENT DATE: 2020
